FAERS Safety Report 10152473 (Version 1)
Quarter: 2014Q2

REPORT INFORMATION
  Report Type: Spontaneous
  Country: US (occurrence: US)
  Receive Date: 20140505
  Receipt Date: 20140505
  Transmission Date: 20141212
  Serious: No
  Sender: FDA-Public Use
  Company Number: US-009507513-1404USA005883

PATIENT
  Sex: 0

DRUGS (1)
  1. EMEND [Suspect]
     Indication: ANTIEMETIC SUPPORTIVE CARE
     Dosage: 150 MG, ONCE
     Route: 042
     Dates: start: 20130901, end: 20130901

REACTIONS (1)
  - Anaphylactic reaction [Unknown]
